FAERS Safety Report 6725358-X (Version None)
Quarter: 2010Q2

REPORT INFORMATION
  Report Type: 
  Country: None (occurrence: None)
  Receive Date: 20100514
  Receipt Date: 20100510
  Transmission Date: 20101027
  Serious: Yes (Other)
  Sender: FDA-Public Use
  Company Number: BE-BRISTOL-MYERS SQUIBB COMPANY-15101983

PATIENT
  Sex: Male

DRUGS (1)
  1. MITOMYCIN-C [Suspect]
     Dosage: INJ
     Route: 040

REACTIONS (1)
  - DEAFNESS [None]
